FAERS Safety Report 13078597 (Version 2)
Quarter: 2017Q1

REPORT INFORMATION
  Report Type: Spontaneous
  Country: US (occurrence: US)
  Receive Date: 20170102
  Receipt Date: 20170302
  Transmission Date: 20170428
  Serious: No
  Sender: FDA-Public Use
  Company Number: US-LUNDBECK-DKLU2020129

PATIENT
  Age: 55 Year
  Sex: Female

DRUGS (2)
  1. NORTHERA [Suspect]
     Active Substance: DROXIDOPA
     Indication: PRODUCT USED FOR UNKNOWN INDICATION
     Route: 065
     Dates: start: 20160914
  2. NORTHERA [Suspect]
     Active Substance: DROXIDOPA
     Route: 065

REACTIONS (7)
  - Nervousness [Unknown]
  - Drug ineffective [Unknown]
  - Hypotension [Unknown]
  - Anxiety [Unknown]
  - Irritability [Unknown]
  - Anger [Unknown]
  - Nightmare [Unknown]

NARRATIVE: CASE EVENT DATE: 20160914
